FAERS Safety Report 10562340 (Version 3)
Quarter: 2015Q1

REPORT INFORMATION
  Report Type: Spontaneous
  Country: IT (occurrence: None)
  Receive Date: 20141031
  Receipt Date: 20150213
  Transmission Date: 20150720
  Serious: Yes (Hospitalization)
  Sender: FDA-Public Use
  Company Number: TPU2014-00337

PATIENT
  Age: 43 Year
  Sex: Male

DRUGS (1)
  1. VERSATIS (LIDOCAINE PATCH 5%) (5 PERCENT, POULTICE OR PATCH) [Suspect]
     Active Substance: LIDOCAINE
     Indication: NEURALGIA
     Dosage: 1 PLASTER, ONCE, TOPICAL
     Route: 061
     Dates: start: 20140420, end: 20140420

REACTIONS (4)
  - Off label use [None]
  - Pharyngeal oedema [None]
  - Hypersensitivity [None]
  - Eye swelling [None]

NARRATIVE: CASE EVENT DATE: 20140420
